FAERS Safety Report 9571918 (Version 1)
Quarter: 2013Q4

REPORT INFORMATION
  Report Type: Spontaneous
  Country: US (occurrence: US)
  Receive Date: 20131001
  Receipt Date: 20131001
  Transmission Date: 20140711
  Serious: No
  Sender: FDA-Public Use
  Company Number: US-009507513-1309USA011776

PATIENT
  Age: 46 Year
  Sex: Male

DRUGS (4)
  1. JANUMET XR [Suspect]
     Indication: HYPERGLYCAEMIA
     Dosage: 50/500 MG TAKEN ONCE DAILY
     Route: 048
     Dates: start: 20130912, end: 20130922
  2. OMEPRAZOLE [Concomitant]
     Dosage: UNK, PRN
  3. FLONASE [Concomitant]
     Dosage: UNK, PRN
  4. ALLEGRA-D [Suspect]
     Dosage: UNK, PRN

REACTIONS (3)
  - Chest discomfort [Recovering/Resolving]
  - Hyperglycaemia [Unknown]
  - Inappropriate schedule of drug administration [Unknown]
